FAERS Safety Report 10484760 (Version 1)
Quarter: 2014Q3

REPORT INFORMATION
  Report Type: Report from Study
  Country: ES (occurrence: SE)
  Receive Date: 20140930
  Receipt Date: 20140930
  Transmission Date: 20150326
  Serious: Yes (Other)
  Sender: FDA-Public Use
  Company Number: SE-FRI-1000071087

PATIENT
  Age: 66 Year
  Sex: Female
  Weight: 78.3 kg

DRUGS (14)
  1. SERETIDE [Concomitant]
     Active Substance: FLUTICASONE FUROATE\SALMETEROL XINAFOATE
     Dates: start: 20140507
  2. ACLIDINIUM [Suspect]
     Active Substance: ACLIDINIUM BROMIDE
     Indication: CHRONIC OBSTRUCTIVE PULMONARY DISEASE
     Dosage: 644 MCG
     Dates: start: 20140613, end: 20140829
  3. METOPROLOL [Concomitant]
     Active Substance: METOPROLOL
     Dosage: 200 MG
     Dates: start: 20140327
  4. INOLAXOL [Concomitant]
     Dosage: 2 BAGS
     Dates: start: 20140623
  5. TREO COMP [Concomitant]
     Dosage: 1-2 TABLETS 3 DAILY
     Dates: start: 20140409
  6. ACLIDINIUM [Suspect]
     Active Substance: ACLIDINIUM BROMIDE
     Dosage: 322 MCG TWICE DAY
  7. SPIRIVA [Concomitant]
     Active Substance: TIOTROPIUM BROMIDE MONOHYDRATE
     Dosage: 1 INHALATION
     Route: 055
     Dates: start: 20140422
  8. IMOVANE [Concomitant]
     Active Substance: ZOPICLONE
     Dates: start: 20140611
  9. KALCIPOS-D [Concomitant]
     Active Substance: CALCIUM CARBONATE\CHOLECALCIFEROL
     Dosage: 2 TABLETS
     Dates: start: 20140623
  10. LOSARTAN/HYDROCORTHIAZIDE [Concomitant]
     Dosage: 100/25 MG DAILY
     Dates: start: 20110901
  11. OMEPRAZOL [Concomitant]
     Active Substance: OMEPRAZOLE
     Dosage: 1 CAPSULE DAILY
     Dates: start: 20130816
  12. SPARKAL [Concomitant]
     Active Substance: AMILORIDE HYDROCHLORIDE
     Dosage: 2.5/25MG
     Dates: start: 20140829
  13. ALVEDON DEPOT [Concomitant]
     Dosage: 6 TABLET
     Dates: start: 20120729
  14. GIONA EASYHALER [Concomitant]
     Dates: start: 20140306

REACTIONS (1)
  - Peripheral swelling [Not Recovered/Not Resolved]

NARRATIVE: CASE EVENT DATE: 20140725
